FAERS Safety Report 7879364-2 (Version None)
Quarter: 2011Q4

REPORT INFORMATION
  Report Type: 
  Country: None (occurrence: None)
  Receive Date: 20111101
  Receipt Date: 20111024
  Transmission Date: 20120403
  Serious: Yes (Other)
  Sender: FDA-Public Use
  Company Number: KR-BAYER-2011-104262

PATIENT
  Sex: Female

DRUGS (1)
  1. YAZ [Suspect]
     Dosage: UNK
     Route: 048
     Dates: start: 20111018

REACTIONS (9)
  - MYALGIA [None]
  - BREAST PAIN [None]
  - ABDOMINAL PAIN LOWER [None]
  - DEPRESSED MOOD [None]
  - EMOTIONAL DISORDER [None]
  - VAGINAL HAEMORRHAGE [None]
  - BACK PAIN [None]
  - FATIGUE [None]
  - INSOMNIA [None]
